FAERS Safety Report 16079726 (Version 1)
Quarter: 2019Q1

REPORT INFORMATION
  Report Type: Spontaneous
  Country: GB (occurrence: GB)
  Receive Date: 20190315
  Receipt Date: 20190315
  Transmission Date: 20190418
  Serious: Yes (Hospitalization)
  Sender: FDA-Public Use
  Company Number: GB-TEVA-2019-GB-1023760

PATIENT
  Age: 39 Year
  Sex: Male
  Weight: 86 kg

DRUGS (1)
  1. TRIMETHOPRIM. [Suspect]
     Active Substance: TRIMETHOPRIM
     Indication: URINARY TRACT INFECTION
     Route: 048
     Dates: start: 20190208, end: 20190211

REACTIONS (4)
  - Dermatitis allergic [Not Recovered/Not Resolved]
  - Dehydration [Unknown]
  - Erythema [Unknown]
  - Pallor [Unknown]

NARRATIVE: CASE EVENT DATE: 20190212
